FAERS Safety Report 24178600 (Version 2)
Quarter: 2024Q4

REPORT INFORMATION
  Report Type: Spontaneous
  Country: US (occurrence: US)
  Receive Date: 20240806
  Receipt Date: 20241104
  Transmission Date: 20250115
  Serious: Yes (Other)
  Sender: BRISTOL-MYERS SQUIBB COMPANY
  Company Number: US-BRISTOL-MYERS SQUIBB COMPANY-2024-121569

PATIENT
  Age: 80 Year
  Sex: Male
  Weight: 72.57 kg

DRUGS (1)
  1. REVLIMID [Suspect]
     Active Substance: LENALIDOMIDE
     Indication: Plasma cell myeloma
     Dosage: DAILY FOR 21 DAYS ON THEN 7 DAYS OF
     Route: 048
     Dates: start: 20230301

REACTIONS (6)
  - Upper-airway cough syndrome [Unknown]
  - Cataract [Unknown]
  - Arthritis [Unknown]
  - Paraesthesia [Unknown]
  - Diarrhoea [Unknown]
  - Retinal tear [Unknown]
